FAERS Safety Report 6734465-7 (Version None)
Quarter: 2010Q2

REPORT INFORMATION
  Report Type: 
  Country: None (occurrence: None)
  Receive Date: 20100513
  Receipt Date: 20090911
  Transmission Date: 20101027
  Serious: Yes (Hospitalization, Other)
  Sender: FDA-Public Use
  Company Number: 2009SP025244

PATIENT
  Age: 63 Year
  Sex: Male

DRUGS (9)
  1. ZEMURON [Suspect]
     Indication: NEUROMUSCULAR BLOCKADE
     Dosage: 100 MG;ONCE;IV
     Route: 042
     Dates: start: 20090825, end: 20090825
  2. MIDAZOLAM HCL [Concomitant]
  3. FENTANYL [Concomitant]
  4. SUCCINYLCHOLINE [Concomitant]
  5. ETOMIDATE [Concomitant]
  6. ZUMERON [Suspect]
  7. ZUMERON [Suspect]
  8. ZUMERON [Suspect]
  9. ZUMERON [Suspect]

REACTIONS (3)
  - BRONCHOSPASM [None]
  - HYPOTENSION [None]
  - RASH [None]
